FAERS Safety Report 10185306 (Version 1)
Quarter: 2014Q2

REPORT INFORMATION
  Report Type: Spontaneous
  Country: US (occurrence: US)
  Receive Date: 20140521
  Receipt Date: 20140521
  Transmission Date: 20141212
  Serious: No
  Sender: FDA-Public Use
  Company Number: US-PFIZER INC-2014137529

PATIENT
  Sex: 0

DRUGS (4)
  1. LYRICA [Suspect]
     Indication: PAIN
     Dosage: UNK
  2. NEURONTIN [Suspect]
     Indication: PAIN
     Dosage: UNK
  3. SAVELLA [Suspect]
     Indication: PAIN
     Dosage: UNK
  4. CYMBALTA [Suspect]
     Indication: PAIN
     Dosage: UNK

REACTIONS (5)
  - Malaise [Unknown]
  - Dizziness [Unknown]
  - Impaired driving ability [Unknown]
  - Drug ineffective [Unknown]
  - Restless legs syndrome [Unknown]
